FAERS Safety Report 12014974 (Version 1)
Quarter: 2016Q1

REPORT INFORMATION
  Report Type: Spontaneous
  Country: US (occurrence: US)
  Receive Date: 20160205
  Receipt Date: 20160205
  Transmission Date: 20160526
  Serious: No
  Sender: FDA-Public Use
  Company Number: US-JNJFOC-20151218997

PATIENT
  Age: 70 Year
  Sex: Female
  Weight: 65.77 kg

DRUGS (3)
  1. FISH OIL [Concomitant]
     Active Substance: FISH OIL
     Indication: HIGH DENSITY LIPOPROTEIN DECREASED
     Route: 065
  2. NIZORAL A-D [Suspect]
     Active Substance: KETOCONAZOLE
     Indication: SKIN FISSURES
     Route: 061
  3. ASPIRIN. [Concomitant]
     Active Substance: ASPIRIN
     Indication: CARDIOVASCULAR EVENT PROPHYLAXIS
     Route: 065

REACTIONS (3)
  - Off label use [Unknown]
  - Product use issue [Unknown]
  - Drug ineffective for unapproved indication [Unknown]

NARRATIVE: CASE EVENT DATE: 201512
